FAERS Safety Report 5346799-1 (Version None)
Quarter: 2007Q2

REPORT INFORMATION
  Report Type: 
  Country: None (occurrence: None)
  Receive Date: 20070501
  Receipt Date: 20070307
  Transmission Date: 20071010
  Serious: No
  Sender: FDA-Public Use
  Company Number: VNL_0463_2007

PATIENT
  Age: 81 Year
  Sex: Male

DRUGS (5)
  1. APOKYN [Suspect]
     Indication: PARKINSON'S DISEASE
     Dosage: 0.2 ML ONCE SC
     Route: 058
     Dates: start: 20070307, end: 20070307
  2. LISINOPRIL [Concomitant]
  3. PROPRANOLOL [Concomitant]
  4. ZOLOFT [Concomitant]
  5. SINEMET [Concomitant]

REACTIONS (2)
  - BLOOD PRESSURE INCREASED [None]
  - CONDITION AGGRAVATED [None]
